FAERS Safety Report 12302209 (Version 3)
Quarter: 2017Q2

REPORT INFORMATION
  Report Type: Report from Study
  Country: US (occurrence: US)
  Receive Date: 20160425
  Receipt Date: 20170516
  Transmission Date: 20170830
  Serious: Yes (Other)
  Sender: FDA-Public Use
  Company Number: US-SA-2016SA078559

PATIENT
  Sex: Male
  Weight: 92.53 kg

DRUGS (5)
  1. LANTUS SOLOSTAR [Suspect]
     Active Substance: INSULIN GLARGINE
     Indication: DIABETES MELLITUS
     Dosage: DOSE:60 UNIT(S)
     Route: 051
     Dates: start: 2003
  2. SOLOSTAR [Concomitant]
     Active Substance: DEVICE
     Indication: DIABETES MELLITUS
     Dates: start: 2003
  3. LISINOPRIL. [Concomitant]
     Active Substance: LISINOPRIL
  4. LANTUS [Suspect]
     Active Substance: INSULIN GLARGINE
     Indication: DIABETES MELLITUS
     Route: 051
     Dates: start: 2002
  5. NOVOLOG [Concomitant]
     Active Substance: INSULIN ASPART
     Dates: start: 2002

REACTIONS (4)
  - Neuropathy peripheral [Unknown]
  - Hypoaesthesia [Unknown]
  - Eye disorder [Unknown]
  - Glaucoma [Unknown]
